FAERS Safety Report 8506662-1 (Version None)
Quarter: 2012Q3

REPORT INFORMATION
  Report Type: 
  Country: None (occurrence: None)
  Receive Date: 20120712
  Receipt Date: 20120710
  Transmission Date: 20120928
  Serious: Yes (Other)
  Sender: FDA-Public Use
  Company Number: US-PFIZER INC-2012165591

PATIENT
  Sex: Female

DRUGS (2)
  1. DILAUDID [Suspect]
     Dosage: UNK
  2. LYRICA [Suspect]
     Dosage: UNK

REACTIONS (3)
  - WEIGHT INCREASED [None]
  - FATIGUE [None]
  - PRURITUS [None]
